FAERS Safety Report 25418467 (Version 1)
Quarter: 2025Q2

REPORT INFORMATION
  Report Type: Spontaneous
  Country: US (occurrence: None)
  Receive Date: 20250606
  Receipt Date: 20250606
  Transmission Date: 20250716
  Serious: Yes (Hospitalization)
  Sender: FDA-CTU
  Company Number: None

PATIENT
  Sex: Female
  Weight: 63 kg

DRUGS (4)
  1. WINREVAIR [Suspect]
     Active Substance: SOTATERCEPT-CSRK
     Indication: Pulmonary arterial hypertension
     Route: 058
     Dates: start: 20250115
  2. DEVICE [Concomitant]
     Active Substance: DEVICE
  3. STERILE DILUENT FOR REMODULIN [Concomitant]
     Active Substance: WATER
  4. REMODULIN [Suspect]
     Active Substance: TREPROSTINIL

REACTIONS (2)
  - Heart rate increased [None]
  - Nonspecific reaction [None]
